FAERS Safety Report 9752258 (Version 1)
Quarter: 2013Q4

REPORT INFORMATION
  Report Type: Spontaneous
  Country: MY (occurrence: MY)
  Receive Date: 20131213
  Receipt Date: 20131213
  Transmission Date: 20140711
  Serious: Yes (Other)
  Sender: FDA-Public Use
  Company Number: MY-009507513-1312MYS001101

PATIENT
  Age: 55 Year
  Sex: Female

DRUGS (4)
  1. TIENAM [Suspect]
     Indication: NEUTROPENIC SEPSIS
     Dosage: 2 G, QD
     Route: 042
  2. RANITIDINE [Concomitant]
  3. AMPHOTERICIN B [Concomitant]
  4. CHLORPHENIRAMINE MALEATE [Concomitant]

REACTIONS (1)
  - Epilepsy [Recovered/Resolved]
